FAERS Safety Report 15864770 (Version 1)
Quarter: 2019Q1

REPORT INFORMATION
  Report Type: Report from Study
  Country: US (occurrence: US)
  Receive Date: 20190124
  Receipt Date: 20190124
  Transmission Date: 20190417
  Serious: Yes (Death, Hospitalization)
  Sender: FDA-Public Use
  Company Number: US-ACTELION-A-NJ2018-181133

PATIENT
  Age: 68 Year
  Sex: Male
  Weight: 87.53 kg

DRUGS (6)
  1. OXYGEN. [Concomitant]
     Active Substance: OXYGEN
     Dosage: UNK L, UNK
  2. OXYGEN. [Concomitant]
     Active Substance: OXYGEN
     Dosage: 8 L, UNK
     Dates: start: 20181101
  3. VELETRI [Suspect]
     Active Substance: EPOPROSTENOL
     Dosage: 11 NG/KG, PER MIN
     Route: 042
  4. VELETRI [Suspect]
     Active Substance: EPOPROSTENOL
     Indication: PULMONARY HYPERTENSION
     Dosage: 9 NG/KG, PER MIN
     Route: 042
  5. VELETRI [Suspect]
     Active Substance: EPOPROSTENOL
     Dosage: 10 NG/KG, PER MIN
     Route: 042
  6. OPSUMIT [Suspect]
     Active Substance: MACITENTAN
     Indication: PULMONARY HYPERTENSION
     Dosage: 10 MG, UNK
     Route: 048
     Dates: start: 20180401

REACTIONS (21)
  - Pain in jaw [Unknown]
  - Constipation [Unknown]
  - Oxygen saturation decreased [Unknown]
  - Blood pressure decreased [Unknown]
  - Headache [Unknown]
  - Chest discomfort [Recovered/Resolved]
  - Diarrhoea [Unknown]
  - Chills [Not Recovered/Not Resolved]
  - Feeling abnormal [Unknown]
  - Sleep disorder [Unknown]
  - Abdominal pain upper [Recovered/Resolved]
  - Pulmonary arterial hypertension [Fatal]
  - Therapy non-responder [Not Recovered/Not Resolved]
  - Nasal congestion [Unknown]
  - Abdominal distension [Unknown]
  - Influenza like illness [Unknown]
  - Flushing [Not Recovered/Not Resolved]
  - Dizziness [Unknown]
  - Oxygen consumption increased [Recovered/Resolved]
  - Somnolence [Recovered/Resolved]
  - Oxygen saturation increased [Unknown]

NARRATIVE: CASE EVENT DATE: 20181101
